FAERS Safety Report 16514298 (Version 2)
Quarter: 2020Q3

REPORT INFORMATION
  Report Type: Other
  Country: DE (occurrence: DE)
  Receive Date: 20190702
  Receipt Date: 20200707
  Transmission Date: 20201102
  Serious: Yes (Other)
  Sender: FDA-Public Use
  Company Number: DE-LUPIN PHARMACEUTICALS INC.-2019-03855

PATIENT
  Age: 47 Year
  Sex: Female
  Weight: 65 kg

DRUGS (13)
  1. QUETIAPINE FUMARATE EXTENDED?RELEASE [Suspect]
     Active Substance: QUETIAPINE FUMARATE
     Indication: DEPRESSION
     Dosage: 225 MG PER DAY (BIS 150 MG/D, 100?150 UNRETARD)
     Route: 048
     Dates: start: 20180310, end: 20181211
  2. L?THYROXIN [LEVOTHYROXINE SODIUM] [Concomitant]
     Active Substance: LEVOTHYROXINE SODIUM
     Indication: HYPOTHYROIDISM
     Dosage: 100 MICROGRAM, QD, (BIS 50 ???G/D) (30. ? 35.5. GESTATIONAL WEEK)
     Route: 048
     Dates: start: 20180310, end: 20181023
  3. QUETIAPINE FUMARATE. [Suspect]
     Active Substance: QUETIAPINE FUMARATE
     Indication: DEPRESSION
     Dosage: 225 MG PER DAY (BIS 150 MG/D, 50?75 UNRETARD)
     Route: 048
     Dates: start: 20180310, end: 20181211
  4. COLECALCIFEROL [Concomitant]
     Active Substance: CHOLECALCIFEROL
     Indication: VITAMIN D DEFICIENCY
     Dosage: UNK, 20000 (I.E./WK ) (28. ? 39.3. GESTATIONAL WEEK)
     Route: 048
  5. ACTRAPID [Concomitant]
     Active Substance: INSULIN HUMAN
     Indication: GESTATIONAL DIABETES
     Dosage: UNK (100 I.E. PER ML; 30. ? 35.5. GESTATIONAL WEEK)
     Route: 058
  6. VAXIGRIPTETRA [Concomitant]
     Active Substance: INFLUENZA VIRUS VACCINE QUADRIVALENT TYPE A+B
     Indication: IMMUNISATION
     Dosage: UNK (28. ? 39.3. GESTATIONAL WEEK)
     Route: 030
  7. CLEXANE [Concomitant]
     Active Substance: ENOXAPARIN SODIUM
     Indication: PROPHYLAXIS OF ABORTION
     Dosage: UNK (28. ? 39.3. GESTATIONAL WEEK)
     Route: 058
     Dates: start: 20180328, end: 20180421
  8. XYLOMETAZOLINE [Concomitant]
     Active Substance: XYLOMETAZOLINE
     Indication: NASAL CONGESTION
     Dosage: UNK (28. ? 39.3. GESTATIONAL WEEK)
     Route: 045
  9. FAMENITA [Concomitant]
     Active Substance: PROGESTERONE
     Indication: PROPHYLAXIS OF ABORTION
     Dosage: 600 MILLIGRAM, QD, (3X200) (2?12 GESTATIONAL WEEK)
     Route: 067
  10. PROLUTON [HYDROXYPROGESTERONE CAPROATE] [Concomitant]
     Indication: PROPHYLAXIS OF ABORTION
     Dosage: 500 MILLIGRAM, QD, EVERY 3 DAYS (2.4. ? 5.5. GESTATIONAL WEEK)
     Route: 030
     Dates: start: 20180328, end: 20180419
  11. ASPIRIN. [Concomitant]
     Active Substance: ASPIRIN
     Indication: PROPHYLAXIS
     Dosage: 100 MICROGRAM, QD (2.4. ? 34. GESTATIONAL WEEK)
     Route: 048
  12. PREDNISOLON [PREDNISOLONE] [Concomitant]
     Active Substance: PREDNISOLONE
     Indication: INFERTILITY FEMALE
     Dosage: 15 MILLIGRAM, QD, (BIS 5) (2. ? 6.3. GESTATIONAL WEEK)
     Route: 048
     Dates: start: 20180324, end: 20180424
  13. PROLUTEX [Concomitant]
     Active Substance: PROGESTERONE
     Indication: PROPHYLAXIS OF ABORTION
     Dosage: 200 MILLIGRAM, QD (4.6. ? 5.5. GESTATIONAL WEEK)
     Route: 058
     Dates: start: 20180413, end: 20180419

REACTIONS (3)
  - Polyhydramnios [Recovered/Resolved]
  - Gestational diabetes [Recovered/Resolved]
  - Exposure during pregnancy [Unknown]
